FAERS Safety Report 11734489 (Version 1)
Quarter: 2015Q4

REPORT INFORMATION
  Report Type: Spontaneous
  Country: US (occurrence: US)
  Receive Date: 20151113
  Receipt Date: 20151113
  Transmission Date: 20160304
  Serious: Yes (Other)
  Sender: FDA-Public Use
  Company Number: US-TEVA-608206USA

PATIENT
  Age: 42 Year
  Sex: Female

DRUGS (1)
  1. ZECUITY [Suspect]
     Active Substance: SUMATRIPTAN SUCCINATE
     Route: 062
     Dates: start: 20151104

REACTIONS (4)
  - Device leakage [Unknown]
  - Application site burn [Unknown]
  - Application site pain [Unknown]
  - Application site dryness [Unknown]

NARRATIVE: CASE EVENT DATE: 20151104
